FAERS Safety Report 4539383-0 (Version None)
Quarter: 2004Q4

REPORT INFORMATION
  Report Type: 
  Country: None (occurrence: None)
  Receive Date: 20041222
  Receipt Date: 20041213
  Transmission Date: 20050328
  Serious: Yes (Hospitalization)
  Sender: FDA-Public Use
  Company Number: 2003AP02377

PATIENT
  Age: 62 Year
  Sex: Male

DRUGS (11)
  1. IRESSA [Suspect]
     Indication: LUNG NEOPLASM MALIGNANT
     Dosage: 250 MG DAILY PO
     Route: 048
     Dates: start: 20020921
  2. NAVELBINE [Concomitant]
  3. MS CONTIN [Concomitant]
  4. PREDNISOLONE [Concomitant]
  5. BISOLVON [Concomitant]
  6. COUGHNOL [Concomitant]
  7. VANCOMIN [Concomitant]
  8. CODEINE PHOSPHATE [Concomitant]
  9. MAGNESIUM OXIDE [Concomitant]
  10. NO MATCH [Concomitant]
  11. SENNOSIDE [Concomitant]

REACTIONS (16)
  - ABNORMAL BEHAVIOUR [None]
  - ABSCESS [None]
  - AFFECT LABILITY [None]
  - AGITATION [None]
  - ANGER [None]
  - CEREBROVASCULAR DISORDER [None]
  - DELIRIUM [None]
  - DEMENTIA ALZHEIMER'S TYPE [None]
  - DIARRHOEA [None]
  - FAMILY STRESS [None]
  - LUNG NEOPLASM MALIGNANT [None]
  - MALIGNANT NEOPLASM PROGRESSION [None]
  - METASTASES TO CENTRAL NERVOUS SYSTEM [None]
  - RASH [None]
  - SOMNOLENCE [None]
  - VISION BLURRED [None]
